FAERS Safety Report 10305580 (Version 1)
Quarter: 2014Q3

REPORT INFORMATION
  Report Type: Spontaneous
  Country: TN (occurrence: TN)
  Receive Date: 20140715
  Receipt Date: 20140715
  Transmission Date: 20150326
  Serious: Yes (Other)
  Sender: FDA-Public Use
  Company Number: TN-ACTAVIS-2014-14980

PATIENT
  Age: 57 Year
  Sex: Male

DRUGS (4)
  1. ETOPOSIDE. [Suspect]
     Active Substance: ETOPOSIDE
     Indication: PANCREATIC NEUROENDOCRINE TUMOUR
     Dosage: 100 MG/M2, DAILY, FROM DAY 1 TO DAY 3 (4 CYCLES)
     Route: 042
  2. ETOPOSIDE. [Suspect]
     Active Substance: ETOPOSIDE
     Indication: METASTASES TO LIVER
  3. CISPLATIN (UNKNOWN) [Suspect]
     Active Substance: CISPLATIN
     Indication: PANCREATIC NEUROENDOCRINE TUMOUR
     Dosage: 100 MG/M2, CYCLICAL; ON DAY 1 EVERY 21 DAYS (3 CYCLES)
     Route: 065
  4. CISPLATIN (UNKNOWN) [Suspect]
     Active Substance: CISPLATIN
     Indication: METASTASES TO LIVER

REACTIONS (2)
  - Alopecia [Unknown]
  - Atrial fibrillation [Recovered/Resolved]
